FAERS Safety Report 24929006 (Version 1)
Quarter: 2025Q1

REPORT INFORMATION
  Report Type: Spontaneous
  Country: DE (occurrence: DE)
  Receive Date: 20250205
  Receipt Date: 20250205
  Transmission Date: 20250409
  Serious: Yes (Other)
  Sender: ROVIPHARM SAS
  Company Number: DE-ROVI-20241231

PATIENT
  Sex: Male

DRUGS (2)
  1. RISPERIDONE [Suspect]
     Active Substance: RISPERIDONE
     Indication: Schizophrenia
  2. ORAL RISPERIDONE [Concomitant]
     Indication: Schizophrenia

REACTIONS (3)
  - Hallucination, auditory [Unknown]
  - Antipsychotic drug level below therapeutic [Unknown]
  - Intentional product misuse [Unknown]

NARRATIVE: CASE EVENT DATE: 20240301
